FAERS Safety Report 14185372 (Version 1)
Quarter: 2017Q4

REPORT INFORMATION
  Report Type: Spontaneous
  Country: US (occurrence: US)
  Receive Date: 20171114
  Receipt Date: 20171114
  Transmission Date: 20180321
  Serious: No
  Sender: FDA-Public Use
  Company Number: US-TARO-2016TAR00857

PATIENT
  Age: 52 Year
  Sex: Male
  Weight: 75.74 kg

DRUGS (1)
  1. MUPIROCIN OINTMENT USP 2% [Suspect]
     Active Substance: MUPIROCIN
     Indication: STAPHYLOCOCCAL SKIN INFECTION
     Dosage: 1 DOSAGE UNITS, 2X/DAY
     Route: 045
     Dates: start: 20160924

REACTIONS (2)
  - Incorrect route of drug administration [Not Recovered/Not Resolved]
  - Palpitations [Not Recovered/Not Resolved]

NARRATIVE: CASE EVENT DATE: 20160924
